FAERS Safety Report 4270658-9 (Version None)
Quarter: 2004Q1

REPORT INFORMATION
  Report Type: 
  Country: None (occurrence: None)
  Receive Date: 20040114
  Receipt Date: 20040109
  Transmission Date: 20041129
  Serious: Yes (Death)
  Sender: FDA-Public Use
  Company Number: WAES 0401AUS00031

PATIENT
  Age: 85 Year
  Sex: Male

DRUGS (1)
  1. EDECRIN [Suspect]

REACTIONS (1)
  - DEATH [None]
